FAERS Safety Report 12616413 (Version 1)
Quarter: 2016Q3

REPORT INFORMATION
  Report Type: Spontaneous
  Country: US (occurrence: US)
  Receive Date: 20160802
  Receipt Date: 20160802
  Transmission Date: 20161109
  Serious: Yes (Other)
  Sender: FDA-Public Use
  Company Number: US-PFIZER INC-2987045

PATIENT
  Age: 61 Year
  Sex: Female

DRUGS (1)
  1. VANCOMYCIN HCL [Suspect]
     Active Substance: VANCOMYCIN HYDROCHLORIDE
     Indication: LOCALISED INFECTION
     Dosage: UNK
     Dates: end: 20150101

REACTIONS (1)
  - Antibiotic level above therapeutic [Unknown]

NARRATIVE: CASE EVENT DATE: 20150101
